FAERS Safety Report 15946100 (Version 1)
Quarter: 2019Q1

REPORT INFORMATION
  Report Type: Report from Study
  Country: US (occurrence: US)
  Receive Date: 20190211
  Receipt Date: 20190211
  Transmission Date: 20190417
  Serious: Yes (Other)
  Sender: FDA-Public Use
  Company Number: US-AMGEN-USASL2019002317

PATIENT
  Age: 15 Year
  Sex: Female
  Weight: 53.61 kg

DRUGS (5)
  1. METHOTREXATE. [Concomitant]
     Active Substance: METHOTREXATE
     Indication: JUVENILE IDIOPATHIC ARTHRITIS
     Dosage: 17.5 MG, QWK
     Dates: start: 201710
  2. NAPROXEN. [Concomitant]
     Active Substance: NAPROXEN
     Indication: JUVENILE IDIOPATHIC ARTHRITIS
     Dosage: 375 MG, AS NECESSARY
  3. ENBREL [Suspect]
     Active Substance: ETANERCEPT
     Indication: JUVENILE IDIOPATHIC ARTHRITIS
     Dosage: 40 MG, QWK
     Route: 065
     Dates: start: 20181218, end: 20181227
  4. LEUCOVORIN. [Concomitant]
     Active Substance: LEUCOVORIN
     Indication: JUVENILE IDIOPATHIC ARTHRITIS
     Dosage: 5 MG, QWK
     Dates: start: 201805
  5. ENBREL [Suspect]
     Active Substance: ETANERCEPT
     Dosage: 40 MG, QWK
     Route: 065
     Dates: start: 201901

REACTIONS (5)
  - Limb discomfort [Unknown]
  - Headache [Unknown]
  - Hypoaesthesia [Recovered/Resolved]
  - Arthralgia [Unknown]
  - Reflexes abnormal [Unknown]

NARRATIVE: CASE EVENT DATE: 201812
